FAERS Safety Report 9528405 (Version 1)
Quarter: 2013Q1

REPORT INFORMATION
  Report Type: Spontaneous
  Country: US (occurrence: None)
  Receive Date: 20130314
  Receipt Date: 20130314
  Transmission Date: 20140127
  Serious: No
  Sender: FDA-Public Use
  Company Number: 1301USA011180

PATIENT
  Age: 57 Year
  Sex: Male
  Weight: 96 kg

DRUGS (7)
  1. VICTRELIS (BOCEPREVIR) CAPSULE, 200 MG [Suspect]
     Dosage: 4 DF, TID, EVERY 7-9 HOURS, ORAL
  2. PEGASYS (PEGINTERFERON ALFA-2A) [Suspect]
  3. RIBAPAK (RIBAVIRIN) [Suspect]
     Dosage: 800/DAY/UNK
  4. ZOLOFT (SERTRALINE HYDROCHLORIDE) [Concomitant]
  5. NEURONTIN (GABAPENTIN) [Concomitant]
  6. VITAMINS [Concomitant]
  7. LOSARTAN POTASSIUM [Concomitant]

REACTIONS (2)
  - Malaise [None]
  - Chills [None]
